FAERS Safety Report 10538442 (Version 2)
Quarter: 2015Q2

REPORT INFORMATION
  Report Type: Report from Study
  Country: US (occurrence: US)
  Receive Date: 20141023
  Receipt Date: 20150617
  Transmission Date: 20150821
  Serious: Yes (Hospitalization, Other)
  Sender: FDA-Public Use
  Company Number: US-GILEAD-2014-0119285

PATIENT
  Age: 47 Year
  Sex: Female

DRUGS (1)
  1. RANOLAZINE [Suspect]
     Active Substance: RANOLAZINE
     Indication: PRODUCT USED FOR UNKNOWN INDICATION
     Dosage: 1000 MG, UNK
     Route: 048

REACTIONS (5)
  - Cerebrovascular accident [Unknown]
  - Peripheral arterial occlusive disease [Unknown]
  - Vascular graft [Unknown]
  - Neuropathy peripheral [Unknown]
  - Poor peripheral circulation [Unknown]

NARRATIVE: CASE EVENT DATE: 2014
